FAERS Safety Report 8540791-1 (Version None)
Quarter: 2012Q3

REPORT INFORMATION
  Report Type: 
  Country: None (occurrence: None)
  Receive Date: 20120726
  Receipt Date: 20120719
  Transmission Date: 20120928
  Serious: Yes (Hospitalization)
  Sender: FDA-Public Use
  Company Number: JP-VERTEX PHARMACEUTICALS INC.-AE-2012-004271

PATIENT
  Age: 69 Year
  Sex: Female

DRUGS (10)
  1. TELAVIC (TELAPREVIR) [Suspect]
     Indication: HEPATITIS C
     Route: 048
     Dates: start: 20120117, end: 20120205
  2. RIBAVIRIN [Concomitant]
     Route: 048
     Dates: start: 20120613, end: 20120621
  3. RIBAVIRIN [Concomitant]
     Route: 048
     Dates: start: 20120127, end: 20120205
  4. PEGINTERFERON ALFA-2B [Concomitant]
     Indication: HEPATITIS C
     Route: 058
     Dates: start: 20120117, end: 20120201
  5. TELAVIC (TELAPREVIR) [Suspect]
     Route: 048
     Dates: start: 20120508, end: 20120621
  6. PEGINTERFERON ALFA-2B [Concomitant]
     Route: 058
     Dates: start: 20120508, end: 20120620
  7. URSO 250 [Concomitant]
     Route: 048
     Dates: start: 20120223
  8. RIBAVIRIN [Concomitant]
     Indication: HEPATITIS C
     Route: 048
     Dates: start: 20120117, end: 20120126
  9. RIBAVIRIN [Concomitant]
     Route: 048
     Dates: start: 20120508, end: 20120612
  10. PEGINTERFERON ALFA-2B [Concomitant]
     Route: 048
     Dates: start: 20120621, end: 20120621

REACTIONS (3)
  - RENAL TUBULAR NECROSIS [None]
  - ANAEMIA [None]
  - HAEMOGLOBIN DECREASED [None]
